FAERS Safety Report 12245885 (Version 2)
Quarter: 2016Q2

REPORT INFORMATION
  Report Type: Spontaneous
  Country: US (occurrence: US)
  Receive Date: 20160407
  Receipt Date: 20160410
  Transmission Date: 20160815
  Serious: No
  Sender: FDA-Public Use
  Company Number: US-TEVA-608845USA

PATIENT
  Age: 41 Year
  Sex: Male
  Weight: 67.19 kg

DRUGS (2)
  1. FENTORA [Suspect]
     Active Substance: FENTANYL CITRATE
     Indication: PAIN
     Route: 065
     Dates: start: 201506, end: 20151108
  2. OXYCODONE [Concomitant]
     Active Substance: OXYCODONE
     Indication: PAIN

REACTIONS (2)
  - Product use issue [Unknown]
  - Pain [Unknown]

NARRATIVE: CASE EVENT DATE: 20151108
